FAERS Safety Report 5721219-3 (Version None)
Quarter: 2008Q2

REPORT INFORMATION
  Report Type: 
  Country: None (occurrence: None)
  Receive Date: 20080423
  Receipt Date: 20071108
  Transmission Date: 20081010
  Serious: Yes (Life-Threatening)
  Sender: FDA-Public Use
  Company Number: 249246

PATIENT
  Age: 32 Year
  Sex: Female
  Weight: 84.5 kg

DRUGS (10)
  1. AVASTIN [Suspect]
     Indication: GLIOBLASTOMA MULTIFORME
     Dosage: 846 MG, Q2W, INTRAVENOUS
     Route: 042
     Dates: start: 20070817
  2. AVASTIN [Suspect]
  3. CELEBREX [Concomitant]
  4. DECADRON (DEXAMTHASONE) [Concomitant]
  5. ELMIRON [Concomitant]
  6. HEPARIN [Concomitant]
  7. PHENAZOPYRIDINE HCL TAB [Concomitant]
  8. ZANTAC [Concomitant]
  9. ZOVIRAX [Concomitant]
  10. ACIPHEX [Concomitant]

REACTIONS (1)
  - HAEMORRHAGE [None]
